FAERS Safety Report 9646286 (Version 1)
Quarter: 2013Q4

REPORT INFORMATION
  Report Type: Spontaneous
  Country: ES (occurrence: ES)
  Receive Date: 20131025
  Receipt Date: 20131025
  Transmission Date: 20140711
  Serious: Yes (Hospitalization)
  Sender: FDA-Public Use
  Company Number: ES-MYLANLABS-2013S1023282

PATIENT
  Age: 76 Year
  Sex: Male

DRUGS (3)
  1. ESOMEPRAZOLE [Suspect]
     Indication: BARRETT^S OESOPHAGUS
     Route: 065
     Dates: start: 200309, end: 20120120
  2. OMEPRAZOLE [Suspect]
     Route: 065
     Dates: start: 20120131
  3. HEPARIN [Concomitant]
     Indication: ANTICOAGULANT THERAPY
     Dosage: LOW MOLECULAR WEIGHT HEPARIN
     Route: 065

REACTIONS (7)
  - Hypomagnesaemia [Recovered/Resolved]
  - Confusional state [Recovered/Resolved]
  - Hypertension [Recovered/Resolved]
  - Arrhythmia supraventricular [Recovered/Resolved]
  - Dyslipidaemia [Recovered/Resolved]
  - Epilepsy [Recovered/Resolved]
  - Diabetes mellitus [Recovered/Resolved]
